FAERS Safety Report 11884279 (Version 1)
Quarter: 2016Q1

REPORT INFORMATION
  Report Type: Spontaneous
  Country: US (occurrence: US)
  Receive Date: 20160103
  Receipt Date: 20160103
  Transmission Date: 20160526
  Serious: No
  Sender: FDA-Public Use
  Company Number: US-JNJFOC-20151210235

PATIENT
  Sex: Female
  Weight: 98.43 kg

DRUGS (4)
  1. INVOKANA [Suspect]
     Active Substance: CANAGLIFLOZIN
     Indication: DIABETES MELLITUS
     Route: 048
     Dates: start: 20151210
  2. METFORMIN [Concomitant]
     Active Substance: METFORMIN HYDROCHLORIDE
     Indication: DIABETES MELLITUS
     Route: 048
  3. GLYBURIDE. [Concomitant]
     Active Substance: GLYBURIDE
     Dosage: AFTERNOON
     Route: 048
  4. INVOKANA [Suspect]
     Active Substance: CANAGLIFLOZIN
     Indication: DIABETES MELLITUS
     Route: 048
     Dates: start: 20151112, end: 20151209

REACTIONS (16)
  - Swelling face [Recovering/Resolving]
  - Weight decreased [Unknown]
  - Alcohol intolerance [Unknown]
  - Presyncope [Recovered/Resolved]
  - Wrong technique in product usage process [Not Recovered/Not Resolved]
  - Drug hypersensitivity [Unknown]
  - Incorrect dose administered [Unknown]
  - Asthenia [Recovered/Resolved]
  - Pruritus [Recovering/Resolving]
  - Rash [Unknown]
  - Inappropriate schedule of drug administration [Not Recovered/Not Resolved]
  - Feeling abnormal [Unknown]
  - Fatigue [Recovering/Resolving]
  - Erythema [Recovered/Resolved]
  - Dizziness postural [Recovered/Resolved]
  - Lip swelling [Recovering/Resolving]

NARRATIVE: CASE EVENT DATE: 201511
